FAERS Safety Report 10669945 (Version 9)
Quarter: 2017Q2

REPORT INFORMATION
  Report Type: Report from Study
  Country: CA (occurrence: CA)
  Receive Date: 20141223
  Receipt Date: 20170418
  Transmission Date: 20170829
  Serious: Yes (Hospitalization, Other)
  Sender: FDA-Public Use
  Company Number: CA-ROCHE-1510106

PATIENT
  Sex: Female

DRUGS (6)
  1. CYMBALTA [Concomitant]
     Active Substance: DULOXETINE HYDROCHLORIDE
  2. ERIVEDGE [Suspect]
     Active Substance: VISMODEGIB
     Indication: BASAL CELL CARCINOMA
     Route: 048
     Dates: start: 20140721, end: 2016
  3. EPREX [Concomitant]
     Active Substance: ERYTHROPOIETIN
  4. METHOTREXATE. [Concomitant]
     Active Substance: METHOTREXATE
  5. FOLIC ACID. [Concomitant]
     Active Substance: FOLIC ACID
  6. VALSARTAN. [Concomitant]
     Active Substance: VALSARTAN

REACTIONS (11)
  - Haemoglobin increased [Unknown]
  - Pneumonia [Unknown]
  - Renal impairment [Not Recovered/Not Resolved]
  - Dumping syndrome [Unknown]
  - Feeling abnormal [Unknown]
  - Cerebrovascular accident [Unknown]
  - Wheezing [Not Recovered/Not Resolved]
  - Dyspnoea [Not Recovered/Not Resolved]
  - Panic attack [Unknown]
  - Hypertension [Unknown]
  - Renal impairment [Unknown]

NARRATIVE: CASE EVENT DATE: 2015
